FAERS Safety Report 6239319-0 (Version None)
Quarter: 2009Q2

REPORT INFORMATION
  Report Type: 
  Country: None (occurrence: None)
  Receive Date: 20090622
  Receipt Date: 20090617
  Transmission Date: 20091009
  Serious: Yes (Death, Hospitalization)
  Sender: FDA-Public Use
  Company Number: PHHO2009DE07534

PATIENT
  Sex: Female
  Weight: 60 kg

DRUGS (2)
  1. RAD 666 RAD+TAB [Suspect]
     Indication: STEM CELL TRANSPLANT
     Dosage: 2.5 MG, BID
     Route: 048
     Dates: start: 20081123, end: 20090223
  2. MYFORTIC [Suspect]
     Indication: STEM CELL TRANSPLANT
     Dosage: 720 MG, BID
     Dates: start: 20081123, end: 20090223

REACTIONS (9)
  - ACUTE GRAFT VERSUS HOST DISEASE IN INTESTINE [None]
  - ACUTE GRAFT VERSUS HOST DISEASE IN SKIN [None]
  - BK VIRUS INFECTION [None]
  - DRUG INEFFECTIVE [None]
  - ENTEROCOCCAL SEPSIS [None]
  - EPSTEIN-BARR VIRUS INFECTION [None]
  - OBSTRUCTIVE AIRWAYS DISORDER [None]
  - PNEUMONIA PRIMARY ATYPICAL [None]
  - RESPIRATORY FAILURE [None]
